FAERS Safety Report 13694138 (Version 1)
Quarter: 2017Q2

REPORT INFORMATION
  Report Type: Spontaneous
  Country: US (occurrence: US)
  Receive Date: 20170627
  Receipt Date: 20170627
  Transmission Date: 20170830
  Serious: No
  Sender: FDA-Public Use
  Company Number: US-BAYER-2017-111067

PATIENT
  Age: 89 Year
  Sex: Female

DRUGS (2)
  1. BENEFIBER [Concomitant]
     Active Substance: STARCH, WHEAT
     Dosage: 1 DF, BID
  2. MIRALAX [Suspect]
     Active Substance: POLYETHYLENE GLYCOL 3350
     Indication: IRRITABLE BOWEL SYNDROME
     Dosage: 1 DF, UNK
     Route: 048

REACTIONS (5)
  - Dyschezia [Unknown]
  - Feeling abnormal [Unknown]
  - Product use issue [Unknown]
  - Off label use [Unknown]
  - Product use in unapproved indication [None]

NARRATIVE: CASE EVENT DATE: 2017
